FAERS Safety Report 7803153-8 (Version None)
Quarter: 2011Q4

REPORT INFORMATION
  Report Type: 
  Country: None (occurrence: None)
  Receive Date: 20111007
  Receipt Date: 20101004
  Transmission Date: 20120403
  Serious: No
  Sender: FDA-Public Use
  Company Number: US-ABBOTT-10P-163-0670776-00

PATIENT
  Sex: Male
  Weight: 66.284 kg

DRUGS (4)
  1. BACTRIM [Concomitant]
     Indication: CANDIDIASIS
     Dates: start: 20100801
  2. DIFLUCAN [Concomitant]
     Indication: CANDIDIASIS
     Dates: start: 20100801
  3. TRUVADA [Concomitant]
     Indication: HIV INFECTION
     Dates: start: 20100823
  4. KALETRA [Suspect]
     Indication: HIV INFECTION
     Dosage: 200/60MG; 2 TABS, TWICE A DAY
     Dates: start: 20100823

REACTIONS (2)
  - FATIGUE [None]
  - DIZZINESS [None]
